FAERS Safety Report 10200447 (Version 1)
Quarter: 2014Q2

REPORT INFORMATION
  Report Type: Spontaneous
  Country: US (occurrence: US)
  Receive Date: 20140528
  Receipt Date: 20140528
  Transmission Date: 20141212
  Serious: No
  Sender: FDA-Public Use
  Company Number: US-B.I. PHARMACEUTICALS,INC./RIDGEFIELD-2014-BI-21908BP

PATIENT
  Sex: Female

DRUGS (8)
  1. MOBIC [Suspect]
     Indication: PRODUCT USED FOR UNKNOWN INDICATION
     Route: 065
  2. VFEND [Concomitant]
     Indication: ASPERGILLUS INFECTION
     Dosage: 200 MG
     Route: 048
     Dates: start: 20140109
  3. TRAMADOL HCL [Concomitant]
     Route: 065
  4. COREG [Concomitant]
     Route: 065
  5. PREDNISONE [Concomitant]
     Route: 065
  6. COUMADIN [Concomitant]
     Route: 065
  7. ROBITUSSIN [Concomitant]
     Route: 065
  8. LIDOCAINE [Concomitant]
     Dosage: PATCH
     Route: 065

REACTIONS (1)
  - Drug hypersensitivity [Unknown]
